FAERS Safety Report 7055644-8 (Version None)
Quarter: 2010Q4

REPORT INFORMATION
  Report Type: 
  Country: None (occurrence: None)
  Receive Date: 20101021
  Receipt Date: 20101020
  Transmission Date: 20110411
  Serious: Yes (Other)
  Sender: FDA-Public Use
  Company Number: US-BRISTOL-MYERS SQUIBB COMPANY-15339229

PATIENT
  Age: 55 Year
  Sex: Female

DRUGS (5)
  1. METFORMIN HCL [Suspect]
  2. ZESTRIL [Suspect]
     Indication: HYPERTENSION
  3. ASPIRIN [Suspect]
  4. PHENOBARBITAL [Suspect]
  5. DOXAZOSIN MESYLATE [Suspect]

REACTIONS (1)
  - ANGIOEDEMA [None]
